FAERS Safety Report 10586992 (Version 1)
Quarter: 2014Q4

REPORT INFORMATION
  Report Type: Spontaneous
  Country: IN (occurrence: IN)
  Receive Date: 20141117
  Receipt Date: 20141117
  Transmission Date: 20150529
  Serious: Yes (Death, Hospitalization)
  Sender: FDA-Public Use
  Company Number: PHHY2014IN148264

PATIENT
  Age: 60 Year
  Sex: Male

DRUGS (1)
  1. CERTICAN [Suspect]
     Active Substance: EVEROLIMUS
     Indication: TRANSPLANT
     Dosage: 0.25 MG, BID (2-0-2)
     Route: 048
     Dates: start: 2000

REACTIONS (4)
  - Dyspnoea [Fatal]
  - Lung neoplasm malignant [Fatal]
  - Vomiting [Fatal]
  - Asthenia [Fatal]

NARRATIVE: CASE EVENT DATE: 20141007
